FAERS Safety Report 14577569 (Version 2)
Quarter: 2018Q2

REPORT INFORMATION
  Report Type: Spontaneous
  Country: US (occurrence: US)
  Receive Date: 20180227
  Receipt Date: 20180508
  Transmission Date: 20180711
  Serious: Yes (Other)
  Sender: FDA-Public Use
  Company Number: US-BAYER-2018-032521

PATIENT
  Age: 30 Year
  Sex: Female
  Weight: 78.91 kg

DRUGS (2)
  1. MIRENA [Suspect]
     Active Substance: LEVONORGESTREL
     Indication: CONTRACEPTION
     Dosage: UNK
  2. MIRENA [Suspect]
     Active Substance: LEVONORGESTREL
     Indication: CONTRACEPTION
     Dosage: 20 MCG/24HR, CONT
     Route: 015
     Dates: start: 20130814, end: 20180216

REACTIONS (7)
  - Polymenorrhoea [None]
  - Device breakage [None]
  - Embedded device [Recovered/Resolved]
  - Genital haemorrhage [Recovering/Resolving]
  - Polymenorrhoea [None]
  - Abdominal tenderness [None]
  - Complication of device removal [None]

NARRATIVE: CASE EVENT DATE: 2017
